FAERS Safety Report 6013069-8 (Version None)
Quarter: 2008Q4

REPORT INFORMATION
  Report Type: 
  Country: None (occurrence: None)
  Receive Date: 20081217
  Receipt Date: 20081203
  Transmission Date: 20090506
  Serious: Yes (Other)
  Sender: FDA-Public Use
  Company Number: 2008PE0297

PATIENT
  Age: 37 Year
  Sex: Female
  Weight: 65.7716 kg

DRUGS (1)
  1. (PRENATE ELITE TABLETS) [Suspect]
     Indication: SUPPLEMENTATION THERAPY
     Dosage: 1 TABLET, DAILY, PO
     Route: 048
     Dates: start: 20081013, end: 20081014

REACTIONS (5)
  - ABDOMINAL PAIN [None]
  - ABORTION SPONTANEOUS [None]
  - DIARRHOEA [None]
  - DRUG EXPOSURE DURING PREGNANCY [None]
  - FREQUENT BOWEL MOVEMENTS [None]
